FAERS Safety Report 20310986 (Version 1)
Quarter: 2022Q1

REPORT INFORMATION
  Report Type: Spontaneous
  Country: US (occurrence: US)
  Receive Date: 20220107
  Receipt Date: 20220107
  Transmission Date: 20220423
  Serious: No
  Sender: FDA-Public Use
  Company Number: US-GENERICUS, INC.-2021GNR00008

PATIENT
  Age: 65 Year
  Sex: Female
  Weight: 73.016 kg

DRUGS (2)
  1. TOBRAMYCIN [Suspect]
     Active Substance: TOBRAMYCIN
     Indication: Cystic fibrosis
     Dosage: 300 MG/5 ML, EVERY 12 HOURS FOR 28 DAYS ON THEN 28 DAYS OFF
     Dates: start: 201907
  2. HERBALS\TURMERIC [Suspect]
     Active Substance: HERBALS\TURMERIC
     Dosage: UNK
     Dates: end: 202104

REACTIONS (6)
  - Skin discolouration [Unknown]
  - Abdominal pain [Recovered/Resolved]
  - Nausea [Recovering/Resolving]
  - Diarrhoea [Not Recovered/Not Resolved]
  - Pruritus [Unknown]
  - Rash [Unknown]

NARRATIVE: CASE EVENT DATE: 20210401
